FAERS Safety Report 17868862 (Version 1)
Quarter: 2020Q2

REPORT INFORMATION
  Report Type: Spontaneous
  Country: US (occurrence: US)
  Receive Date: 20200607
  Receipt Date: 20200607
  Transmission Date: 20200714
  Serious: Yes (Hospitalization, Other)
  Sender: FDA-Public Use
  Company Number: US-AUROBINDO-AUR-APL-2020-026968

PATIENT
  Age: 63 Year
  Sex: Female

DRUGS (2)
  1. ETOMIDATE. [Suspect]
     Active Substance: ETOMIDATE
     Indication: PRODUCT USED FOR UNKNOWN INDICATION
     Dosage: 20 MILLIGRAM
     Route: 065
  2. ROCURONIUM BROMIDE. [Suspect]
     Active Substance: ROCURONIUM BROMIDE
     Indication: ENDOTRACHEAL INTUBATION
     Dosage: 100 MILLIGRAM
     Route: 065

REACTIONS (2)
  - Paralysis [Recovered/Resolved]
  - Hypotension [Recovered/Resolved]
